FAERS Safety Report 20590740 (Version 1)
Quarter: 2022Q1

REPORT INFORMATION
  Report Type: Spontaneous
  Country: US (occurrence: US)
  Receive Date: 20220314
  Receipt Date: 20220314
  Transmission Date: 20220423
  Serious: Yes (Death)
  Sender: FDA-Public Use
  Company Number: US-GENERICUS, INC.-2022GNR00005

PATIENT
  Age: 78 Year
  Sex: Female

DRUGS (1)
  1. TOBRAMYCIN [Suspect]
     Active Substance: TOBRAMYCIN
     Indication: Bronchiectasis
     Dosage: 300 MG/5 ML VIA NEBULIZER, 2X/DAY FOR 28 DAYS, STOP FOR 28 DAYS, REPEAT CYCLE
     Dates: start: 20220128, end: 20220224

REACTIONS (1)
  - Death [Fatal]

NARRATIVE: CASE EVENT DATE: 20220224
